FAERS Safety Report 5271256-0 (Version None)
Quarter: 2007Q1

REPORT INFORMATION
  Report Type: 
  Country: None (occurrence: None)
  Receive Date: 20070315
  Receipt Date: 20070227
  Transmission Date: 20070707
  Serious: Yes (Other)
  Sender: FDA-Public Use
  Company Number: 2006RR-04435

PATIENT
  Age: 20 Year
  Sex: Female

DRUGS (2)
  1. FLUOXETINE [Suspect]
     Indication: DEPRESSION
     Dosage: 20 MG, QD, 30 MG, QD
     Dates: start: 20030601, end: 20030815
  2. MIRTAZAPINE [Concomitant]

REACTIONS (8)
  - AGGRESSION [None]
  - CHILD NEGLECT [None]
  - EMOTIONAL DISORDER [None]
  - FLAT AFFECT [None]
  - IMPULSIVE BEHAVIOUR [None]
  - PHYSICAL ASSAULT [None]
  - THEFT [None]
  - THERAPEUTIC RESPONSE DECREASED [None]
